FAERS Safety Report 9492376 (Version 1)
Quarter: 2013Q3

REPORT INFORMATION
  Report Type: Spontaneous
  Country: IT (occurrence: IT)
  Receive Date: 20130830
  Receipt Date: 20130830
  Transmission Date: 20140515
  Serious: Yes (Life-Threatening)
  Sender: FDA-Public Use
  Company Number: IT-WATSON-2013-15717

PATIENT
  Age: 46 Year
  Sex: Male

DRUGS (4)
  1. DIAZEPAM (UNKNOWN) [Suspect]
     Indication: SUICIDE ATTEMPT
     Dosage: UNK
     Dates: start: 20130608, end: 20130608
  2. NEBIVOLOL (UNKNOWN) [Suspect]
     Indication: SUICIDE ATTEMPT
     Dosage: UNK
  3. METHADONE [Suspect]
     Indication: SUICIDE ATTEMPT
     Dosage: UNK
     Dates: start: 20130608, end: 20130608
  4. PHENCYCLIDINE [Suspect]
     Indication: SUICIDE ATTEMPT
     Dosage: UNK
     Dates: start: 20130608, end: 20130608

REACTIONS (7)
  - Suicide attempt [Recovered/Resolved]
  - Rales [Recovered/Resolved]
  - Tachycardia [Recovered/Resolved]
  - Vomiting [Recovered/Resolved]
  - Sopor [Recovered/Resolved]
  - Drug abuse [Recovered/Resolved]
  - Intentional drug misuse [Recovered/Resolved]
